FAERS Safety Report 21067709 (Version 4)
Quarter: 2022Q4

REPORT INFORMATION
  Report Type: Spontaneous
  Country: US (occurrence: US)
  Receive Date: 20220712
  Receipt Date: 20221020
  Transmission Date: 20230113
  Serious: No
  Sender: FDA-Public Use
  Company Number: US-PFIZER INC-202200903274

PATIENT
  Age: 12 Year
  Sex: Female
  Weight: 45.36 kg

DRUGS (1)
  1. GENOTROPIN [Suspect]
     Active Substance: SOMATROPIN
     Indication: Growth hormone deficiency
     Dosage: 1.3 MG (ALTERNATE 1.2 MG AND THEN 1.4 MG THE NEXT NIGHT)

REACTIONS (2)
  - Incorrect dose administered by device [Unknown]
  - Device use issue [Unknown]
